FAERS Safety Report 15699353 (Version 1)
Quarter: 2018Q4

REPORT INFORMATION
  Report Type: Spontaneous
  Country: GB (occurrence: GB)
  Receive Date: 20181207
  Receipt Date: 20181207
  Transmission Date: 20190205
  Serious: Yes (Death)
  Sender: FDA-Public Use
  Company Number: PHHY2018GB175933

PATIENT

DRUGS (2)
  1. FLUDARABINE [Suspect]
     Active Substance: FLUDARABINE PHOSPHATE
     Indication: IMMUNOSUPPRESSANT DRUG THERAPY
  2. FLUDARABINE [Suspect]
     Active Substance: FLUDARABINE PHOSPHATE
     Indication: STEM CELL TRANSPLANT
     Dosage: 150 MG/M2 IN 5 DIVIDED DOSES ON CONSECUTIVE DAYS
     Route: 065

REACTIONS (3)
  - Inflammation [Fatal]
  - Toxicity to various agents [Fatal]
  - Product use in unapproved indication [Unknown]
